FAERS Safety Report 4296399-X (Version None)
Quarter: 2004Q1

REPORT INFORMATION
  Report Type: 
  Country: None (occurrence: None)
  Receive Date: 20040213
  Receipt Date: 20040213
  Transmission Date: 20041129
  Serious: Yes (Hospitalization)
  Sender: FDA-Public Use
  Company Number: None

PATIENT
  Sex: Female
  Weight: 65.318 kg

DRUGS (14)
  1. NITROGLYCERIN [Suspect]
     Indication: CHEST PAIN
     Dosage: SL, PRIOR TO ADMISSION
  2. AZMACORT [Concomitant]
  3. DITROPAN XL [Concomitant]
  4. PREVACID [Concomitant]
  5. PLAVIX [Concomitant]
  6. SEREVENT [Concomitant]
  7. ALLEGRA [Concomitant]
  8. EVISTA [Concomitant]
  9. SYNTHROID [Concomitant]
  10. ZOLOFT [Concomitant]
  11. COUMADIN [Concomitant]
  12. NEURONTIN [Concomitant]
  13. LIPITOR [Concomitant]
  14. KLONOPIN [Concomitant]

REACTIONS (2)
  - DYSPNOEA [None]
  - LOSS OF CONSCIOUSNESS [None]
